FAERS Safety Report 18412905 (Version 1)
Quarter: 2020Q4

REPORT INFORMATION
  Report Type: Report from Study
  Country: US (occurrence: US)
  Receive Date: 20201021
  Receipt Date: 20201021
  Transmission Date: 20210114
  Serious: Yes (Other)
  Sender: FDA-Public Use
  Company Number: US-TEVA-2020-US-1241050

PATIENT
  Age: 17 Year
  Sex: Female

DRUGS (1)
  1. CLARAVIS [Suspect]
     Active Substance: ISOTRETINOIN
     Indication: ACNE
     Dosage: 40 MILLIGRAM DAILY;
     Route: 065
     Dates: start: 20200319, end: 20200519

REACTIONS (3)
  - Mood swings [Recovered/Resolved]
  - Irritability [Not Recovered/Not Resolved]
  - Suicidal ideation [Recovered/Resolved]

NARRATIVE: CASE EVENT DATE: 2020
